FAERS Safety Report 6051575-0 (Version None)
Quarter: 2009Q1

REPORT INFORMATION
  Report Type: 
  Country: None (occurrence: None)
  Receive Date: 20090126
  Receipt Date: 20090120
  Transmission Date: 20090719
  Serious: Yes (Other)
  Sender: FDA-Public Use
  Company Number: B0555217A

PATIENT

DRUGS (2)
  1. TYKERB [Suspect]
     Indication: BREAST CANCER
     Route: 065
  2. XELODA [Concomitant]
     Indication: BREAST CANCER
     Route: 065

REACTIONS (1)
  - NEUTROPENIA [None]
